FAERS Safety Report 19364429 (Version 1)
Quarter: 2021Q2

REPORT INFORMATION
  Report Type: Report from Study
  Country: US (occurrence: US)
  Receive Date: 20210603
  Receipt Date: 20210603
  Transmission Date: 20210717
  Serious: Yes (Hospitalization)
  Sender: FDA-Public Use
  Company Number: US-JNJFOC-20210547883

PATIENT
  Age: 79 Year
  Sex: Female

DRUGS (2)
  1. SPRAVATO [Suspect]
     Active Substance: ESKETAMINE
     Indication: DEPRESSION
     Dosage: 84 MG, 12 TOTAL DOSES
     Dates: start: 20200217, end: 20210504
  2. SPRAVATO [Suspect]
     Active Substance: ESKETAMINE
     Dates: start: 20210521, end: 20210521

REACTIONS (1)
  - Shoulder arthroplasty [Recovered/Resolved]

NARRATIVE: CASE EVENT DATE: 20210506
